FAERS Safety Report 9770771 (Version 1)
Quarter: 2013Q4

REPORT INFORMATION
  Report Type: Spontaneous
  Country: US (occurrence: US)
  Receive Date: 20131218
  Receipt Date: 20131218
  Transmission Date: 20140711
  Serious: Yes (Other)
  Sender: FDA-Public Use
  Company Number: US-PFIZER INC-2013361465

PATIENT
  Age: 36 Year
  Sex: Male
  Weight: 79.36 kg

DRUGS (3)
  1. ADVIL CONGESTION RELIEF [Suspect]
     Indication: HEADACHE
     Dosage: UNK, SINGLE
     Route: 048
     Dates: start: 20131203, end: 20131204
  2. ADVIL CONGESTION RELIEF [Suspect]
     Indication: NASOPHARYNGITIS
     Dosage: UNK, SINGLE
     Route: 048
     Dates: start: 20131209, end: 20131210
  3. ADVIL CONGESTION RELIEF [Suspect]
     Indication: SINUS CONGESTION

REACTIONS (1)
  - Haematochezia [Recovered/Resolved]
